FAERS Safety Report 8387180-0 (Version None)
Quarter: 2012Q2

REPORT INFORMATION
  Report Type: 
  Country: None (occurrence: None)
  Receive Date: 20120525
  Receipt Date: 20120522
  Transmission Date: 20120825
  Serious: Yes (Death)
  Sender: FDA-Public Use
  Company Number: US-ROCHE-1047395

PATIENT
  Sex: Male
  Weight: 93.978 kg

DRUGS (30)
  1. FENTANYL-100 [Concomitant]
     Dosage: 25 MICROGRAM PER HOUR PATCH 72 HOUR TRANSDERMAL PER 72 HOUR.
     Route: 062
     Dates: start: 20111025, end: 20111229
  2. HYDROCODONE BITARTRATE + ACETAMINOPHEN [Concomitant]
     Route: 065
     Dates: start: 20111021
  3. POTASSIUM CHLORIDE [Concomitant]
     Dosage: 2(20 M EQ) TABLET
     Route: 048
  4. PRILOSEC [Concomitant]
     Route: 048
  5. ASCORBIC ACID [Concomitant]
     Route: 048
     Dates: end: 20111129
  6. ASPIRIN [Concomitant]
     Route: 048
     Dates: end: 20110401
  7. DOCETAXEL [Concomitant]
     Dosage: LAST DOSE GIVEN 21/OCT/2011,
     Route: 065
     Dates: start: 20111021
  8. GRANISETRON  HCL [Concomitant]
     Route: 065
     Dates: start: 20110601
  9. NEULASTA [Concomitant]
     Route: 058
     Dates: start: 20110405, end: 20110916
  10. CISPLATIN [Concomitant]
     Dosage: LAST DOSE GIVEN 21/OCT/2011
     Route: 065
     Dates: start: 20111021
  11. FUROSEMIDE [Concomitant]
     Dosage: DAILY FOR 1 DAY , LAST DOSE GIVEN 25/APR/2011
     Route: 042
     Dates: start: 20110404, end: 20110915
  12. SODIUM CHLORIDE [Concomitant]
     Dosage: INTRAVENOUS ONCE , LAST DOSE GIVEN 21/OCT/2011
     Route: 042
     Dates: start: 20110404, end: 20120111
  13. XELODA [Suspect]
     Dosage: ORAL TWICE IN A DAY FOR 21 DAY
     Route: 048
     Dates: start: 20110404, end: 20111010
  14. FLOMAX [Concomitant]
     Route: 048
  15. DECADRON [Concomitant]
     Dosage: DAILY SHORT FOR 1 DAY IN NS 100 ML (5), LAST DOSE GIVEN 25/APR/2011
     Route: 042
     Dates: start: 20110404, end: 20120125
  16. OXALIPLATIN [Concomitant]
     Dosage: 250MG ( AT 102.5 MG / M^2) IV DAILY CONTINOUS OVER 120MIN FOR 1 DAY D%W 500 ML
     Route: 042
     Dates: start: 20110404, end: 20110425
  17. FUROSEMIDE [Concomitant]
     Dosage: LAST DOSE GIVEN 21/OCT/2011
     Route: 065
     Dates: start: 20111021
  18. KLOR-CON M20 [Concomitant]
     Route: 065
     Dates: start: 20110727
  19. ATIVAN [Concomitant]
     Route: 048
  20. DILTIAZEM [Concomitant]
     Route: 048
  21. DEXTROSE [Concomitant]
     Dosage: 250 ML OF 5  PERCENT IV IN ONE SHORT, LAST DOSE GIVEN 25/APR/2011
     Route: 042
     Dates: start: 20110404, end: 20110915
  22. XELODA [Suspect]
     Indication: COLORECTAL CANCER METASTATIC
     Route: 048
     Dates: start: 20110404, end: 20110914
  23. MEGESTROL ACETATE [Concomitant]
     Route: 065
     Dates: start: 20111207
  24. LOMOTIL [Concomitant]
     Dosage: 2.5-0.025 MG Q PRN
     Route: 048
  25. TRAMADOL HCL [Concomitant]
     Route: 048
  26. EPIRUBICIN HYDROCHLORIDE [Concomitant]
     Dosage: 120 MG ( AT 49.2 MG/ M^2) INTRAVENOUS DAILY PUSH OVER 10 MIN FOR 1 DAY, LAST DOSE GIVEN 25/APR/2011
     Route: 042
     Dates: start: 20110404, end: 20120125
  27. ONDANSETRON [Concomitant]
     Dosage: LAST DOSE GOVEN 25/APR/2011
     Route: 058
     Dates: start: 20110425, end: 20110602
  28. GRANISETRON  HCL [Concomitant]
     Dosage: LAST DOSE GIVEN ON 04/APR/2011
     Route: 042
     Dates: start: 20110601
  29. PALONOSETRON HYDROCHLORIDE [Concomitant]
     Dosage: LAST DOSE GIVEN 21/OCT/2011
     Route: 065
     Dates: start: 20111021
  30. AVODART [Concomitant]
     Route: 048

REACTIONS (1)
  - METASTATIC GASTRIC CANCER [None]
